FAERS Safety Report 5984901-9 (Version None)
Quarter: 2008Q4

REPORT INFORMATION
  Report Type: 
  Country: None (occurrence: None)
  Receive Date: 20081208
  Receipt Date: 20071121
  Transmission Date: 20090506
  Serious: No
  Sender: FDA-Public Use
  Company Number: US-AMGEN-KDL253688

PATIENT
  Sex: Female

DRUGS (4)
  1. ENBREL [Suspect]
     Indication: RHEUMATOID ARTHRITIS
     Route: 058
     Dates: start: 20071103
  2. ARAVA [Concomitant]
     Route: 048
     Dates: start: 19980101
  3. HYDROXYCHLOROQUINE SULFATE [Concomitant]
     Dates: start: 20070801
  4. FOSAMAX [Concomitant]

REACTIONS (2)
  - DIZZINESS [None]
  - INJECTION SITE PAIN [None]
